FAERS Safety Report 18563558 (Version 6)
Quarter: 2022Q4

REPORT INFORMATION
  Report Type: Report from Study
  Country: AR (occurrence: AR)
  Receive Date: 20201201
  Receipt Date: 20221013
  Transmission Date: 20230113
  Serious: Yes (Hospitalization, Other)
  Sender: FDA-Public Use
  Company Number: AR-TAKEDA-2020TUS044257

PATIENT
  Age: 21 Year
  Sex: Male

DRUGS (12)
  1. IDURSULFASE [Suspect]
     Active Substance: IDURSULFASE
     Indication: Mucopolysaccharidosis II
     Dosage: 0.5 MILLIGRAM/KILOGRAM, 1/WEEK
     Route: 042
     Dates: start: 20120206
  2. DIPHENHYDRAMINE [Concomitant]
     Active Substance: DIPHENHYDRAMINE
     Indication: Premedication
     Dosage: UNK
     Route: 065
     Dates: start: 2012
  3. ACETAMINOPHEN [Concomitant]
     Active Substance: ACETAMINOPHEN
     Indication: Premedication
     Dosage: UNK
     Route: 065
     Dates: start: 2012
  4. PIPERACILLIN [Concomitant]
     Active Substance: PIPERACILLIN
     Indication: Pyrexia
     Dosage: UNK
     Route: 042
     Dates: start: 20201024, end: 20201119
  5. TAZOBACTAM [Concomitant]
     Active Substance: TAZOBACTAM
     Indication: Pyrexia
     Dosage: UNK
     Route: 042
     Dates: start: 20201024, end: 20201119
  6. VANCOMYCIN [Concomitant]
     Active Substance: VANCOMYCIN
     Indication: Pyrexia
     Dosage: UNK
     Route: 042
     Dates: start: 20201024, end: 20201119
  7. SODIUM CHLORIDE [Concomitant]
     Active Substance: SODIUM CHLORIDE
     Indication: Candida infection
     Dosage: UNK
     Route: 042
     Dates: start: 20201118, end: 20201126
  8. ACETAMINOPHEN [Concomitant]
     Active Substance: ACETAMINOPHEN
     Indication: Pain
     Dosage: UNK
     Route: 048
     Dates: start: 20201119
  9. TROPICAMIDE [Concomitant]
     Active Substance: TROPICAMIDE
     Indication: Retinitis pigmentosa
     Dosage: UNK
     Route: 061
     Dates: start: 20201119
  10. PHENYLEPHRINE [Concomitant]
     Active Substance: PHENYLEPHRINE HYDROCHLORIDE
     Indication: Retinitis pigmentosa
     Dosage: UNK
     Route: 061
     Dates: start: 20201119
  11. FLUCONAZOLE [Concomitant]
     Active Substance: FLUCONAZOLE
     Indication: Candida infection
     Dosage: UNK
     Route: 048
     Dates: start: 20201119
  12. CEPHALEXIN [Concomitant]
     Active Substance: CEPHALEXIN
     Indication: Prophylaxis
     Dosage: UNK
     Route: 048
     Dates: start: 20201126, end: 20201128

REACTIONS (1)
  - Device related infection [Recovered/Resolved]

NARRATIVE: CASE EVENT DATE: 20201118
